FAERS Safety Report 5874744-9 (Version None)
Quarter: 2008Q3

REPORT INFORMATION
  Report Type: 
  Country: None (occurrence: None)
  Receive Date: 20080909
  Receipt Date: 20080904
  Transmission Date: 20090109
  Serious: Yes (Hospitalization)
  Sender: FDA-Public Use
  Company Number: FR-WYE-G02109608

PATIENT
  Sex: Male
  Weight: 46 kg

DRUGS (8)
  1. TAZOCILLINE [Suspect]
     Indication: PSEUDOMONAS INFECTION
     Dosage: UNKNOWN
     Route: 042
     Dates: start: 20080517, end: 20080518
  2. TAZOCILLINE [Suspect]
     Indication: LUNG INFECTION
  3. AMIKLIN [Suspect]
     Indication: PSEUDOMONAS INFECTION
     Dosage: UNKNOWN
     Route: 042
     Dates: start: 20080415, end: 20080521
  4. AMIKLIN [Suspect]
     Indication: LUNG INFECTION
  5. AMIKLIN [Suspect]
     Indication: ATYPICAL MYCOBACTERIAL INFECTION
  6. MYAMBUTOL [Suspect]
     Indication: ATYPICAL MYCOBACTERIAL INFECTION
     Dosage: UNKNOWN
     Route: 048
     Dates: start: 20080415, end: 20080521
  7. RIFADIN [Suspect]
     Indication: ATYPICAL MYCOBACTERIAL INFECTION
     Dosage: UNKNOWN
     Route: 048
     Dates: start: 20080415, end: 20080521
  8. CLARITHROMYCIN [Suspect]
     Indication: ATYPICAL MYCOBACTERIAL INFECTION
     Dosage: UNKNOWN
     Route: 048
     Dates: start: 20080415, end: 20080521

REACTIONS (6)
  - EOSINOPHILIA [None]
  - HYPERTHERMIA [None]
  - PRURITUS [None]
  - RASH ERYTHEMATOUS [None]
  - SKIN EXFOLIATION [None]
  - TOXIC SKIN ERUPTION [None]
